FAERS Safety Report 8430640-4 (Version None)
Quarter: 2012Q2

REPORT INFORMATION
  Report Type: 
  Country: None (occurrence: None)
  Receive Date: 20120612
  Receipt Date: 20120611
  Transmission Date: 20120825
  Serious: Yes (Other)
  Sender: FDA-Public Use
  Company Number: BR-PFIZER INC-2012091637

PATIENT
  Age: 59 Year
  Sex: Male

DRUGS (5)
  1. DIOVAN [Concomitant]
     Indication: HYPERTENSION
     Dosage: 1 DF IN THE MORNING
     Dates: start: 20111001
  2. METFORMIN HCL [Concomitant]
     Indication: DIABETES MELLITUS
     Dosage: ONCE DAILY
     Dates: start: 20100101
  3. ALDACTONE [Suspect]
     Indication: CARDIAC DISORDER
     Dosage: 25 MG, 1X/DAY
     Route: 048
     Dates: start: 20100101
  4. AMILORIDE HYDROCHLORIDE/FUROSEMIDE [Concomitant]
     Indication: DIURETIC THERAPY
     Dosage: ONCE DAILY
     Dates: start: 20120301
  5. METFORMIN [Concomitant]
     Indication: DIABETES MELLITUS
     Dosage: ONCE DAILY
     Dates: start: 20020101

REACTIONS (5)
  - DECREASED APPETITE [None]
  - CARDIAC DISORDER [None]
  - CARDIOMEGALY [None]
  - BLOOD CHOLESTEROL INCREASED [None]
  - BLOOD THYROID STIMULATING HORMONE INCREASED [None]
